FAERS Safety Report 13748294 (Version 1)
Quarter: 2017Q3

REPORT INFORMATION
  Report Type: Spontaneous
  Country: US (occurrence: US)
  Receive Date: 20170713
  Receipt Date: 20170713
  Transmission Date: 20171127
  Serious: No
  Sender: FDA-Public Use
  Company Number: US-PFIZER INC-2017298574

PATIENT
  Age: 38 Year
  Sex: Female

DRUGS (1)
  1. XELJANZ XR [Suspect]
     Active Substance: TOFACITINIB CITRATE
     Dosage: 11 MG, UNK

REACTIONS (9)
  - Joint swelling [Unknown]
  - Hand deformity [Unknown]
  - Joint range of motion decreased [Unknown]
  - Arthralgia [Unknown]
  - Sleep disorder [Unknown]
  - Blood pressure increased [Unknown]
  - Musculoskeletal pain [Unknown]
  - Back pain [Unknown]
  - Lordosis [Unknown]

NARRATIVE: CASE EVENT DATE: 20170215
